FAERS Safety Report 21931972 (Version 2)
Quarter: 2023Q1

REPORT INFORMATION
  Report Type: Report from Study
  Country: US (occurrence: US)
  Receive Date: 20230131
  Receipt Date: 20230207
  Transmission Date: 20230418
  Serious: Yes (Other)
  Sender: FDA-Public Use
  Company Number: US-JNJFOC-20211043678

PATIENT
  Sex: Female

DRUGS (1)
  1. TOPIRAMATE [Interacting]
     Active Substance: TOPIRAMATE
     Indication: Migraine
     Route: 048

REACTIONS (6)
  - Abortion spontaneous [Unknown]
  - Ectopic pregnancy [Unknown]
  - Pregnancy on oral contraceptive [Unknown]
  - Premature delivery [Unknown]
  - Drug interaction [Unknown]
  - Exposure during pregnancy [Unknown]
